FAERS Safety Report 18731987 (Version 1)
Quarter: 2021Q1

REPORT INFORMATION
  Report Type: Spontaneous
  Country: US (occurrence: US)
  Receive Date: 20210112
  Receipt Date: 20210112
  Transmission Date: 20210419
  Serious: No
  Sender: FDA-Public Use
  Company Number: US-MYLANLABS-2020M1095317

PATIENT
  Sex: Male

DRUGS (1)
  1. EMSAM [Suspect]
     Active Substance: SELEGILINE
     Indication: PRODUCT USED FOR UNKNOWN INDICATION
     Dosage: 6 MILLIGRAM, QD
     Route: 062
     Dates: start: 20201006

REACTIONS (6)
  - Application site haemorrhage [Unknown]
  - Application site rash [Unknown]
  - Application site mass [Unknown]
  - Application site pruritus [Recovered/Resolved]
  - Product adhesion issue [Unknown]
  - Product use complaint [Unknown]
